FAERS Safety Report 11460488 (Version 3)
Quarter: 2015Q3

REPORT INFORMATION
  Report Type: Spontaneous
  Country: JP (occurrence: JP)
  Receive Date: 20150904
  Receipt Date: 20150911
  Transmission Date: 20151125
  Serious: Yes (Other)
  Sender: FDA-Public Use
  Company Number: JP-BRISTOL-MYERS SQUIBB COMPANY-BMS-2015-058623

PATIENT
  Age: 46 Year
  Sex: Female

DRUGS (1)
  1. METGLUCO [Suspect]
     Active Substance: METFORMIN HYDROCHLORIDE
     Indication: PRODUCT USED FOR UNKNOWN INDICATION
     Route: 048

REACTIONS (9)
  - Encephalopathy [Unknown]
  - Dysphonia [Unknown]
  - Ataxia [Unknown]
  - Blood lactic acid increased [Unknown]
  - Gait disturbance [Unknown]
  - Posture abnormal [Unknown]
  - Dysarthria [Unknown]
  - Movement disorder [Unknown]
  - Basal ganglion degeneration [Recovering/Resolving]

NARRATIVE: CASE EVENT DATE: 20150826
